FAERS Safety Report 17272946 (Version 2)
Quarter: 2020Q1

REPORT INFORMATION
  Report Type: Spontaneous
  Country: US (occurrence: US)
  Receive Date: 20200115
  Receipt Date: 20200127
  Transmission Date: 20200409
  Serious: No
  Sender: FDA-Public Use
  Company Number: US-PFIZER INC-2019060793

PATIENT
  Age: 68 Year
  Sex: Female

DRUGS (3)
  1. XALKORI [Suspect]
     Active Substance: CRIZOTINIB
     Indication: LUNG NEOPLASM MALIGNANT
     Dosage: 200 MG, UNK (RECEIVED AN INCORRECT DOSAGE OF XALKORI 200 MG AND SHOULD HAVE RECEIVED XALKORI 250 MG)
  2. XALKORI [Suspect]
     Active Substance: CRIZOTINIB
     Indication: NON-SMALL CELL LUNG CANCER STAGE III
     Dosage: 250 MG, UNK
  3. XALKORI [Suspect]
     Active Substance: CRIZOTINIB
     Indication: NON-SMALL CELL LUNG CANCER STAGE IV

REACTIONS (2)
  - Neoplasm progression [Unknown]
  - Product dispensing error [Unknown]
